FAERS Safety Report 8860565 (Version 3)
Quarter: 2013Q2

REPORT INFORMATION
  Report Type: Report from Study
  Country: US (occurrence: US)
  Receive Date: 20121025
  Receipt Date: 20130507
  Transmission Date: 20140414
  Serious: Yes (Other)
  Sender: FDA-Public Use
  Company Number: US-NOVOPROD-362253

PATIENT
  Age: 14 Year
  Sex: Male
  Weight: 45 kg

DRUGS (3)
  1. NORDITROPIN FLEXPRO [Suspect]
     Indication: SILVER-RUSSELL SYNDROME
     Dosage: 2.8 MG, QD
     Route: 058
     Dates: start: 20100202, end: 20121009
  2. NORDITROPIN FLEXPRO [Suspect]
     Indication: FOETAL GROWTH RESTRICTION
  3. NORDITROPIN FLEXPRO [Suspect]
     Indication: BODY HEIGHT BELOW NORMAL

REACTIONS (1)
  - Hypertrophic cardiomyopathy [Unknown]
